FAERS Safety Report 23182319 (Version 1)
Quarter: 2023Q4

REPORT INFORMATION
  Report Type: Spontaneous
  Country: PL (occurrence: PL)
  Receive Date: 20231114
  Receipt Date: 20231114
  Transmission Date: 20240109
  Serious: Yes (Death, Hospitalization)
  Sender: FDA-Public Use
  Company Number: PL-Merck Healthcare KGaA-2023487695

PATIENT
  Age: 54 Year
  Sex: Male

DRUGS (1)
  1. AVELUMAB [Suspect]
     Active Substance: AVELUMAB
     Indication: Bladder cancer
     Dates: start: 20231012

REACTIONS (2)
  - Death [Fatal]
  - Bone pain [Unknown]
